FAERS Safety Report 7439212-1 (Version None)
Quarter: 2011Q2

REPORT INFORMATION
  Report Type: 
  Country: None (occurrence: None)
  Receive Date: 20110427
  Receipt Date: 20110415
  Transmission Date: 20111010
  Serious: Yes (Other)
  Sender: FDA-Public Use
  Company Number: CA-BAYER-2011-033044

PATIENT

DRUGS (1)
  1. YAZ [Suspect]

REACTIONS (2)
  - VISUAL IMPAIRMENT [None]
  - HEADACHE [None]
